FAERS Safety Report 5282634-8 (Version None)
Quarter: 2007Q1

REPORT INFORMATION
  Report Type: 
  Country: None (occurrence: None)
  Receive Date: 20070326
  Receipt Date: 20070316
  Transmission Date: 20070707
  Serious: Yes (Disabling)
  Sender: FDA-Public Use
  Company Number: RES-45U

PATIENT
  Age: 75 Year
  Sex: Female

DRUGS (5)
  1. RESCULA [Suspect]
     Indication: GLAUCOMA
     Dosage: 4 DROPS
     Route: 047
     Dates: start: 19980101
  2. SANPILO (PILOCARPINE HYDROCHLORIDE) [Suspect]
     Indication: GLAUCOMA
     Dosage: 8 DROPS
     Route: 047
     Dates: start: 19980101, end: 20000831
  3. PIVALEPHRINE (DIPIVEFRIN HYDROCHLORIDE) [Suspect]
     Indication: GLAUCOMA
     Dosage: 8 DROPS
     Route: 047
     Dates: start: 19980101, end: 20000831
  4. BETOPIC OPHTHALMIC SOLUTION (BETAXOLOL HYDROCHLORIDE) [Suspect]
     Indication: GLAUCOMA
     Dosage: 4 DROPS
     Route: 047
     Dates: start: 19980101, end: 20000831
  5. HYALEIN OPHTHALMIC SOLUTION (SODIUM HYALURONATE) [Suspect]
     Indication: PUNCTATE KERATITIS
     Dosage: 16 DROPS
     Route: 047
     Dates: start: 19980401

REACTIONS (8)
  - CONJUNCTIVAL DISORDER [None]
  - CORNEAL NEOVASCULARISATION [None]
  - CORNEAL OPACITY [None]
  - EYE DISORDER [None]
  - HYPOPYON [None]
  - PEMPHIGOID [None]
  - SYMBLEPHARON [None]
  - ULCERATIVE KERATITIS [None]
